FAERS Safety Report 7538430-1 (Version None)
Quarter: 2011Q2

REPORT INFORMATION
  Report Type: 
  Country: None (occurrence: None)
  Receive Date: 20110609
  Receipt Date: 20110606
  Transmission Date: 20111010
  Serious: Yes (Death)
  Sender: FDA-Public Use
  Company Number: US-GILEAD-2011-0038505

PATIENT
  Sex: Female

DRUGS (4)
  1. LETAIRIS [Suspect]
     Indication: SLEEP APNOEA SYNDROME
  2. LETAIRIS [Suspect]
     Indication: PULMONARY HYPERTENSION
     Route: 048
     Dates: start: 20110106, end: 20110411
  3. ADCIRCA [Concomitant]
  4. LETAIRIS [Suspect]
     Indication: DIASTOLIC DYSFUNCTION

REACTIONS (1)
  - CARDIAC FAILURE [None]
